FAERS Safety Report 25684845 (Version 1)
Quarter: 2025Q3

REPORT INFORMATION
  Report Type: Spontaneous
  Country: US (occurrence: None)
  Receive Date: 20250814
  Receipt Date: 20250814
  Transmission Date: 20251021
  Serious: Yes (Hospitalization)
  Sender: FDA-CTU
  Company Number: None

PATIENT
  Age: 58 Year
  Sex: Female

DRUGS (1)
  1. DEFERASIROX [Suspect]
     Active Substance: DEFERASIROX
     Indication: Stem cell transplant
     Dosage: 900MG DAILY ORAL
     Route: 048
     Dates: start: 20250220, end: 20250601

REACTIONS (6)
  - Therapy cessation [None]
  - Hypokalaemia [None]
  - Nephropathy toxic [None]
  - Hypomagnesaemia [None]
  - Quality of life decreased [None]
  - Electrolyte imbalance [None]
